FAERS Safety Report 7293810-7 (Version None)
Quarter: 2011Q1

REPORT INFORMATION
  Report Type: 
  Country: None (occurrence: None)
  Receive Date: 20110215
  Receipt Date: 20110209
  Transmission Date: 20110831
  Serious: Yes (Hospitalization)
  Sender: FDA-Public Use
  Company Number: IL-ABBOTT-11P-082-0703963-00

PATIENT
  Sex: Female

DRUGS (9)
  1. METHOTREXATE [Concomitant]
     Indication: RHEUMATOID ARTHRITIS
     Dates: start: 20061101
  2. VOLTAREN [Concomitant]
     Indication: PRODUCT USED FOR UNKNOWN INDICATION
     Dosage: ONCE DAILY
  3. PRILOSEC [Concomitant]
     Indication: GASTRITIS
  4. PREDNISONE [Concomitant]
     Indication: PRODUCT USED FOR UNKNOWN INDICATION
     Dates: start: 20061101
  5. HUMIRA [Suspect]
     Indication: ANTIVIRAL PROPHYLAXIS
     Route: 058
     Dates: start: 20100530
  6. CIPRODEX [Concomitant]
     Indication: URINARY TRACT INFECTION
     Dosage: TWICE DAILY
     Dates: start: 20101227, end: 20110105
  7. PLAQUENIL [Concomitant]
     Indication: RHEUMATOID ARTHRITIS
     Dosage: TWICE DAILY
     Dates: start: 20061101
  8. NORMALOL [Concomitant]
     Indication: HYPERTENSION
  9. SALAZOPYRIN [Concomitant]
     Indication: RHEUMATOID ARTHRITIS
     Dosage: TWICE DAILY
     Dates: start: 20061101

REACTIONS (2)
  - ESCHERICHIA INFECTION [None]
  - RENAL COLIC [None]
